FAERS Safety Report 11130773 (Version 1)
Quarter: 2015Q2

REPORT INFORMATION
  Report Type: Spontaneous
  Country: US (occurrence: US)
  Receive Date: 20150522
  Receipt Date: 20150522
  Transmission Date: 20150821
  Serious: No
  Sender: FDA-Public Use
  Company Number: US-BAYER-2015-259236

PATIENT
  Age: 62 Year
  Sex: Female
  Weight: 28.12 kg

DRUGS (4)
  1. MENTHOL [MENTHOL] [Concomitant]
     Dosage: UNK
  2. TYLENOL [Concomitant]
     Active Substance: ACETAMINOPHEN
     Dosage: UNK
  3. PAINSTOP [Concomitant]
     Dosage: UNK
  4. ALEVE [Suspect]
     Active Substance: NAPROXEN SODIUM
     Indication: FIBROMYALGIA
     Dosage: UNK UNK, PRN

REACTIONS (1)
  - Medication error [Unknown]
